FAERS Safety Report 8415363-X (Version None)
Quarter: 2012Q2

REPORT INFORMATION
  Report Type: 
  Country: None (occurrence: None)
  Receive Date: 20120606
  Receipt Date: 20120531
  Transmission Date: 20120825
  Serious: Yes (Other)
  Sender: FDA-Public Use
  Company Number: PHEH2012US011094

PATIENT
  Sex: Female

DRUGS (1)
  1. VIVELLE-DOT [Suspect]
     Dosage: 2 PATCHES/5 DAYS
     Route: 062

REACTIONS (3)
  - FEELING ABNORMAL [None]
  - DRUG INTOLERANCE [None]
  - INCORRECT DOSE ADMINISTERED [None]
